FAERS Safety Report 9161225 (Version 1)
Quarter: 2013Q1

REPORT INFORMATION
  Report Type: Spontaneous
  Country: CN (occurrence: CN)
  Receive Date: 20130313
  Receipt Date: 20130313
  Transmission Date: 20140127
  Serious: Yes (Hospitalization)
  Sender: FDA-Public Use
  Company Number: CN-009507513-1303CHN003836

PATIENT
  Age: 45 Year
  Sex: Female

DRUGS (2)
  1. MARVELON [Suspect]
     Indication: CONTRACEPTION
     Dosage: 1 DF, QD
     Route: 048
  2. MARVELON [Suspect]
     Indication: UTERINE LEIOMYOMA

REACTIONS (5)
  - Thrombosis [Unknown]
  - Uterine dilation and curettage [Unknown]
  - Inappropriate schedule of drug administration [Unknown]
  - Metrorrhagia [Unknown]
  - Off label use [Unknown]
